FAERS Safety Report 7947001-4 (Version None)
Quarter: 2011Q4

REPORT INFORMATION
  Report Type: 
  Country: None (occurrence: None)
  Receive Date: 20111129
  Receipt Date: 20111117
  Transmission Date: 20120403
  Serious: Yes (Other)
  Sender: FDA-Public Use
  Company Number: IE-ASTRAZENECA-2011SE66505

PATIENT
  Age: 831 Month
  Sex: Female

DRUGS (3)
  1. SYMBICORT [Suspect]
     Indication: ASTHMA
     Dosage: 100/6
     Route: 055
  2. PULMICORT [Suspect]
     Indication: ASTHMA
     Dosage: 200
     Route: 055
     Dates: start: 19860801, end: 20111001
  3. SYMBICORT [Suspect]
     Dosage: 100/6 II BID
     Route: 055
     Dates: start: 20110701

REACTIONS (5)
  - FEELING COLD [None]
  - DRUG EFFECT DECREASED [None]
  - MUSCULAR WEAKNESS [None]
  - DYSPNOEA [None]
  - ADVERSE EVENT [None]
